FAERS Safety Report 24362679 (Version 2)
Quarter: 2024Q4

REPORT INFORMATION
  Report Type: Spontaneous
  Country: FR (occurrence: FR)
  Receive Date: 20240925
  Receipt Date: 20241107
  Transmission Date: 20250115
  Serious: Yes (Other)
  Sender: Vantive US Healthcare
  Company Number: FR-VANTIVE-2024VAN019882

PATIENT
  Sex: Female

DRUGS (1)
  1. NUTRINEAL PD4 [Suspect]
     Active Substance: AMINO ACIDS\CALCIUM CHLORIDE\MAGNESIUM CHLORIDE\SODIUM CHLORIDE\SODIUM LACTATE
     Dosage: 1 BAG 2 LITERS PER DAY
     Route: 033
     Dates: start: 20221223, end: 20240719

REACTIONS (2)
  - Ultrafiltration failure [Recovered/Resolved]
  - Ultrafiltration failure [Unknown]
